FAERS Safety Report 24414880 (Version 1)
Quarter: 2024Q4

REPORT INFORMATION
  Report Type: Spontaneous
  Country: FR (occurrence: FR)
  Receive Date: 20241009
  Receipt Date: 20241009
  Transmission Date: 20250115
  Serious: Yes (Death, Hospitalization)
  Sender: AUROBINDO
  Company Number: FR-ETHYPHARM-2024002544

PATIENT
  Age: 72 Year
  Sex: Male
  Weight: 47 kg

DRUGS (16)
  1. CARBOPLATIN [Suspect]
     Active Substance: CARBOPLATIN
     Indication: Non-small cell lung cancer metastatic
     Dosage: 650 MILLIGRAM
     Route: 042
     Dates: start: 20240322, end: 20240322
  2. PEMETREXED [Suspect]
     Active Substance: PEMETREXED
     Indication: Non-small cell lung cancer metastatic
     Dosage: 755 MILLIGRAM
     Route: 042
     Dates: start: 20240322, end: 20240322
  3. MORPHINE SULFATE [Suspect]
     Active Substance: MORPHINE SULFATE
     Indication: Tumour pain
     Dosage: UNK
     Route: 065
     Dates: start: 20240312
  4. DOMVANALIMAB [Suspect]
     Active Substance: DOMVANALIMAB
     Indication: Non-small cell lung cancer metastatic
     Dosage: 1200 MILLIGRAM
     Route: 042
     Dates: start: 20240322, end: 20240322
  5. ZIMBERELIMAB [Suspect]
     Active Substance: ZIMBERELIMAB
     Indication: Non-small cell lung cancer metastatic
     Dosage: 360 MILLIGRAM
     Route: 042
     Dates: start: 20240322, end: 20240322
  6. SKENAN [Suspect]
     Active Substance: MORPHINE SULFATE
     Indication: Tumour pain
     Dosage: UNK
     Route: 048
     Dates: start: 20240312
  7. PYRIDOSTIGMINE [Concomitant]
     Active Substance: PYRIDOSTIGMINE
     Indication: Product used for unknown indication
     Dosage: UNK
     Route: 065
     Dates: start: 20240312
  8. METOPIMAZINE [Concomitant]
     Active Substance: METOPIMAZINE
     Indication: Product used for unknown indication
     Dosage: UNK
     Route: 065
     Dates: start: 20240312
  9. NEULASTA [Concomitant]
     Active Substance: PEGFILGRASTIM
     Indication: Product used for unknown indication
     Dosage: UNK
     Route: 065
     Dates: start: 20240325
  10. CYANOCOBALAMIN [Concomitant]
     Active Substance: CYANOCOBALAMIN
     Indication: Product used for unknown indication
     Dosage: UNK
     Route: 065
     Dates: start: 20240313
  11. FOLIC ACID [Concomitant]
     Active Substance: FOLIC ACID
     Indication: Product used for unknown indication
     Dosage: UNK
     Route: 065
     Dates: start: 20240313
  12. POLYETHYLENE GLYCOLS [Concomitant]
     Active Substance: POLYETHYLENE GLYCOLS
     Indication: Product used for unknown indication
     Dosage: UNK
     Route: 065
     Dates: start: 20240312
  13. KYTRIL [Concomitant]
     Active Substance: GRANISETRON HYDROCHLORIDE
     Indication: Product used for unknown indication
     Dosage: UNK
     Route: 065
     Dates: start: 20240322
  14. ACETAMINOPHEN [Concomitant]
     Active Substance: ACETAMINOPHEN
     Indication: Product used for unknown indication
     Dosage: UNK
     Route: 065
     Dates: start: 20240312
  15. EMEND [Concomitant]
     Active Substance: APREPITANT
     Indication: Product used for unknown indication
     Dosage: UNK
     Route: 065
     Dates: start: 20240322
  16. Solupred [Concomitant]
     Indication: Product used for unknown indication
     Dosage: UNK
     Route: 065
     Dates: start: 20240323

REACTIONS (3)
  - General physical health deterioration [Fatal]
  - Asthenia [Fatal]
  - Overdose [Fatal]

NARRATIVE: CASE EVENT DATE: 20240301
